FAERS Safety Report 23301402 (Version 1)
Quarter: 2023Q4

REPORT INFORMATION
  Report Type: Spontaneous
  Country: MK (occurrence: None)
  Receive Date: 20231215
  Receipt Date: 20231215
  Transmission Date: 20240109
  Serious: Yes (Death)
  Sender: FDA-Public Use
  Company Number: MK-ROCHE-3472622

PATIENT
  Age: 53 Year
  Sex: Male

DRUGS (1)
  1. LUNSUMIO [Suspect]
     Active Substance: MOSUNETUZUMAB-AXGB
     Indication: Follicular lymphoma
     Route: 042
     Dates: start: 20231011, end: 20231025

REACTIONS (5)
  - Pleural effusion [Fatal]
  - Lymphadenopathy [Fatal]
  - Ascites [Fatal]
  - Disease progression [Fatal]
  - Hepatic cirrhosis [Fatal]

NARRATIVE: CASE EVENT DATE: 20231126
